FAERS Safety Report 7218314-9 (Version None)
Quarter: 2011Q1

REPORT INFORMATION
  Report Type: 
  Country: None (occurrence: None)
  Receive Date: 20110110
  Receipt Date: 20110103
  Transmission Date: 20110831
  Serious: Yes (Hospitalization)
  Sender: FDA-Public Use
  Company Number: US-JNJFOC-20101206844

PATIENT
  Sex: Female
  Weight: 68.49 kg

DRUGS (15)
  1. REMICADE [Suspect]
     Route: 042
  2. REMICADE [Suspect]
     Route: 042
  3. REMICADE [Suspect]
     Route: 042
  4. ANTIHISTAMINES [Concomitant]
     Indication: PREMEDICATION
  5. AZATHIOPRINE [Concomitant]
     Indication: CROHN'S DISEASE
  6. REMICADE [Suspect]
     Route: 042
  7. REMICADE [Suspect]
     Indication: CROHN'S DISEASE
     Route: 042
  8. MESALAMINE [Concomitant]
     Indication: CROHN'S DISEASE
  9. ACETAMINOPHEN [Concomitant]
     Indication: PREMEDICATION
  10. REMICADE [Suspect]
     Route: 042
  11. REMICADE [Suspect]
     Route: 042
  12. REMICADE [Suspect]
     Route: 042
  13. REMICADE [Suspect]
     Route: 042
  14. ANTIBIOTICS [Concomitant]
     Indication: CROHN'S DISEASE
  15. REMICADE [Suspect]
     Route: 042

REACTIONS (3)
  - LARGE INTESTINE PERFORATION [None]
  - ABDOMINAL ABSCESS [None]
  - COLONIC STENOSIS [None]
